FAERS Safety Report 8351990-6 (Version None)
Quarter: 2012Q2

REPORT INFORMATION
  Report Type: 
  Country: None (occurrence: None)
  Receive Date: 20120510
  Receipt Date: 20120510
  Transmission Date: 20120825
  Serious: Yes (Life-Threatening, Other)
  Sender: FDA-Public Use
  Company Number: None

PATIENT
  Sex: Female
  Weight: 88.4514 kg

DRUGS (1)
  1. DICYCLOMINE [Suspect]
     Indication: STRESS
     Dates: start: 20120102, end: 20120320

REACTIONS (14)
  - MULTIPLE CHEMICAL SENSITIVITY [None]
  - CONSTIPATION [None]
  - PSYCHOTIC DISORDER [None]
  - DISORIENTATION [None]
  - AMNESIA [None]
  - NERVOUS SYSTEM DISORDER [None]
  - INSOMNIA [None]
  - OSTEOARTHRITIS [None]
  - INAPPROPRIATE AFFECT [None]
  - FOOD INTOLERANCE [None]
  - FAECALOMA [None]
  - CONFUSIONAL STATE [None]
  - CONDITION AGGRAVATED [None]
  - CONTRAINDICATION TO MEDICAL TREATMENT [None]
